FAERS Safety Report 20563753 (Version 1)
Quarter: 2022Q1

REPORT INFORMATION
  Report Type: Spontaneous
  Country: US (occurrence: US)
  Receive Date: 20220308
  Receipt Date: 20220308
  Transmission Date: 20220424
  Serious: No
  Sender: FDA-Public Use
  Company Number: US-SA-SAC20220301000815

PATIENT
  Age: 69 Year
  Sex: Female

DRUGS (2)
  1. DUPIXENT [Suspect]
     Active Substance: DUPILUMAB
     Indication: Nasal polyps
     Dosage: 300 MG, QOW
     Route: 058
     Dates: start: 20220106, end: 20220217
  2. DUPIXENT [Suspect]
     Active Substance: DUPILUMAB
     Indication: Asthma

REACTIONS (7)
  - Pain in extremity [Unknown]
  - Joint swelling [Unknown]
  - Injection site urticaria [Unknown]
  - Injection site mass [Unknown]
  - Parosmia [Unknown]
  - Injection site erythema [Unknown]
  - Product use in unapproved indication [Unknown]
